FAERS Safety Report 8957216 (Version 1)
Quarter: 2012Q4

REPORT INFORMATION
  Report Type: Report from Study
  Country: US (occurrence: US)
  Receive Date: 20121211
  Receipt Date: 20121211
  Transmission Date: 20130627
  Serious: Yes (Hospitalization)
  Sender: FDA-Public Use
  Company Number: US-BAYER-2012-126569

PATIENT
  Age: 67 Year
  Sex: Female

DRUGS (12)
  1. BAYER GENUINE ASPIRIN ORIGINAL STRENGTH [Suspect]
  2. SAXAGLIPTIN [Suspect]
     Indication: TYPE 2 DIABETES MELLITUS
     Dosage: UNK
     Dates: start: 20101027
  3. METFORMIN HCL [Suspect]
     Indication: TYPE 2 DIABETES MELLITUS
     Dosage: 3000 mg
  4. GLYBURIDE [Suspect]
     Indication: TYPE 2 DIABETES MELLITUS
     Dosage: 5 mg
  5. COUMADIN [Interacting]
     Dosage: UNK
     Dates: start: 20101027
  6. ANTIHYPERTENSIVES [Concomitant]
  7. DIURETICS [Concomitant]
  8. ANTIARRHYTHMICS, CLASS I AND III [Concomitant]
  9. BETA BLOCKING AGENTS [Concomitant]
  10. PLATELET AGGREGATION INHIBITORS [Concomitant]
  11. ORAL ANTI COAGULANTS [Concomitant]
  12. FIBRIC ACID [Concomitant]

REACTIONS (6)
  - Abdominal wall haematoma [Recovering/Resolving]
  - Abdominal pain lower [Recovering/Resolving]
  - Abdominal distension [Recovering/Resolving]
  - Abdominal pain [Recovering/Resolving]
  - Muscle haemorrhage [None]
  - Labelled drug-drug interaction medication error [None]
